FAERS Safety Report 19439741 (Version 1)
Quarter: 2021Q2

REPORT INFORMATION
  Report Type: Spontaneous
  Country: US (occurrence: US)
  Receive Date: 20210620
  Receipt Date: 20210620
  Transmission Date: 20210717
  Serious: No
  Sender: FDA-Public Use
  Company Number: US-ASTRAZENECA-2021A499243

PATIENT
  Age: 21860 Day
  Sex: Male
  Weight: 79.4 kg

DRUGS (6)
  1. IMFINZI [Suspect]
     Active Substance: DURVALUMAB
     Indication: NON-SMALL CELL LUNG CANCER STAGE III
     Route: 042
     Dates: start: 20210524
  2. BENZONATE [Concomitant]
     Active Substance: BENZONATATE
  3. MULTIVITAMINS [Concomitant]
     Active Substance: VITAMINS
  4. ASPIRIN. [Concomitant]
     Active Substance: ASPIRIN
  5. VITAMIN D3 [Concomitant]
     Active Substance: CHOLECALCIFEROL
  6. TYLENOL [Concomitant]
     Active Substance: ACETAMINOPHEN

REACTIONS (2)
  - Fungal skin infection [Not Recovered/Not Resolved]
  - Rash [Not Recovered/Not Resolved]

NARRATIVE: CASE EVENT DATE: 20210531
